FAERS Safety Report 8046258-1 (Version None)
Quarter: 2012Q1

REPORT INFORMATION
  Report Type: 
  Country: None (occurrence: None)
  Receive Date: 20120113
  Receipt Date: 20120112
  Transmission Date: 20120608
  Serious: Yes (Death, Other)
  Sender: FDA-Public Use
  Company Number: US-PFIZER INC-2011311539

PATIENT
  Age: 31 Year
  Sex: Male

DRUGS (4)
  1. METHADONE HCL [Suspect]
     Route: 048
  2. ALPRAZOLAM [Suspect]
     Route: 048
  3. HYDROXYZINE PAMOATE [Suspect]
     Route: 048
  4. TRAZODONE HCL [Suspect]
     Route: 048

REACTIONS (3)
  - RESPIRATORY ARREST [None]
  - CARDIAC ARREST [None]
  - COMPLETED SUICIDE [None]
